FAERS Safety Report 8567684 (Version 2)
Quarter: 2015Q4

REPORT INFORMATION
  Report Type: Spontaneous
  Country: US (occurrence: US)
  Receive Date: 20120517
  Receipt Date: 20151124
  Transmission Date: 20160305
  Serious: Yes (Other)
  Sender: FDA-Public Use
  Company Number: CHPA2012US010388

PATIENT
  Sex: Female

DRUGS (3)
  1. EXCEDRIN EXTRA STRENGTH [Suspect]
     Active Substance: ACETAMINOPHEN\ASPIRIN\CAFFEINE
     Dosage: 2 DF, TWICE IN A WEEK (ON TUESDAY AND THURSDAY)
     Route: 048
  2. EXCEDRIN MIGRAINE [Concomitant]
     Active Substance: ACETAMINOPHEN\ASPIRIN\CAFFEINE
     Indication: PAIN
     Dosage: 2 DF, ONCE/SINGLE
     Route: 048
     Dates: start: 201204, end: 201204
  3. EXCEDRIN EXTRA STRENGTH [Suspect]
     Active Substance: ACETAMINOPHEN\ASPIRIN\CAFFEINE
     Indication: PAIN
     Dosage: 2 DF AT A TIME, TOTAL OF 12 PER MONTH
     Route: 048

REACTIONS (11)
  - Fractured coccyx [Not Recovered/Not Resolved]
  - Nerve injury [Not Recovered/Not Resolved]
  - Road traffic accident [Recovered/Resolved]
  - Headache [Recovered/Resolved]
  - Spinal deformity [Not Recovered/Not Resolved]
  - Hypometabolism [Not Recovered/Not Resolved]
  - Osteoporosis [Not Recovered/Not Resolved]
  - Spinal fracture [Not Recovered/Not Resolved]
  - Intervertebral disc protrusion [Not Recovered/Not Resolved]
  - Discomfort [Not Recovered/Not Resolved]
  - Nerve compression [Not Recovered/Not Resolved]
